FAERS Safety Report 9200660 (Version 1)
Quarter: 2013Q1

REPORT INFORMATION
  Report Type: Spontaneous
  Country: US (occurrence: US)
  Receive Date: 20130331
  Receipt Date: 20130331
  Transmission Date: 20140127
  Serious: Yes (Other)
  Sender: FDA-Public Use
  Company Number: US-UCBSA-081388

PATIENT
  Age: 38 Year
  Sex: Female
  Weight: 48.98 kg

DRUGS (4)
  1. VIMPAT [Suspect]
     Indication: EPILEPSY
     Dates: start: 20130314
  2. KEPPRA [Concomitant]
  3. LAMICTAL [Concomitant]
  4. PHENOBARBITAL [Concomitant]

REACTIONS (3)
  - Grand mal convulsion [Recovered/Resolved]
  - Diarrhoea [Not Recovered/Not Resolved]
  - Dehydration [Not Recovered/Not Resolved]
